FAERS Safety Report 22275071 (Version 1)
Quarter: 2023Q2

REPORT INFORMATION
  Report Type: Spontaneous
  Country: US (occurrence: None)
  Receive Date: 20230501
  Receipt Date: 20230501
  Transmission Date: 20230721
  Serious: No
  Sender: FDA-Public Use
  Company Number: None

PATIENT
  Sex: Female

DRUGS (1)
  1. STELARA [Suspect]
     Active Substance: USTEKINUMAB
     Indication: Colitis ulcerative
     Dosage: 90MG EVERY 4 WEEKS SUB-Q?
     Route: 058
     Dates: start: 20220209

REACTIONS (2)
  - Drug ineffective [None]
  - Therapy change [None]
